FAERS Safety Report 8245957-6 (Version None)
Quarter: 2012Q1

REPORT INFORMATION
  Report Type: 
  Country: None (occurrence: None)
  Receive Date: 20120330
  Receipt Date: 20120326
  Transmission Date: 20120608
  Serious: No
  Sender: FDA-Public Use
  Company Number: US-PFIZER INC-2012077566

PATIENT
  Sex: Female
  Weight: 64.58 kg

DRUGS (5)
  1. ACIPHEX [Concomitant]
     Dosage: 20 MG, UNK
  2. NEURONTIN [Suspect]
     Indication: NEURALGIA
     Dosage: UNK
     Route: 048
     Dates: end: 20080101
  3. PAXIL [Concomitant]
     Dosage: 40 MG, UNK
  4. LORAZEPAM [Concomitant]
     Indication: ANXIETY
     Dosage: 0.5 MG, UNK
  5. LYRICA [Suspect]
     Indication: NEURALGIA
     Dosage: UNK
     Dates: start: 20080101

REACTIONS (2)
  - DRUG INEFFECTIVE [None]
  - PAIN [None]
